FAERS Safety Report 22063759 (Version 4)
Quarter: 2024Q1

REPORT INFORMATION
  Report Type: Other
  Country: US (occurrence: None)
  Receive Date: 20230306
  Receipt Date: 20240109
  Transmission Date: 20240410
  Serious: Yes (Other)
  Sender: FDA-Public Use
  Company Number: US-ROCHE-3296841

PATIENT
  Sex: Female

DRUGS (3)
  1. CELLCEPT [Suspect]
     Active Substance: MYCOPHENOLATE MOFETIL
     Indication: Sjogren^s syndrome
     Dosage: EVERY MORNING
     Route: 048
  2. CELLCEPT [Suspect]
     Active Substance: MYCOPHENOLATE MOFETIL
     Indication: Arthritis
     Dosage: EVERY EVENING 2 TABS IN AM AND 3 TABS IN PM
     Route: 048
  3. CELLCEPT [Suspect]
     Active Substance: MYCOPHENOLATE MOFETIL
     Indication: Sjogren^s syndrome

REACTIONS (6)
  - Autoimmune disorder [Unknown]
  - Lung disorder [Unknown]
  - Off label use [Unknown]
  - Cardiac disorder [Unknown]
  - Anxiety [Unknown]
  - Medication error [Unknown]
